FAERS Safety Report 15681849 (Version 1)
Quarter: 2018Q4

REPORT INFORMATION
  Report Type: Spontaneous
  Country: US (occurrence: US)
  Receive Date: 20181203
  Receipt Date: 20181203
  Transmission Date: 20190205
  Serious: Yes (Other)
  Sender: FDA-Public Use
  Company Number: None

PATIENT
  Age: 9 Year
  Sex: Female
  Weight: 28 kg

DRUGS (2)
  1. RASBURICASE [Suspect]
     Active Substance: RASBURICASE
     Indication: TUMOUR LYSIS SYNDROME
     Dosage: ?          OTHER FREQUENCY:AS NEEDED;?
     Route: 042
  2. RASBURICASE [Suspect]
     Active Substance: RASBURICASE
     Indication: BLOOD URIC ACID INCREASED
     Dosage: ?          OTHER FREQUENCY:AS NEEDED;?
     Route: 042

REACTIONS (4)
  - Product dose omission [None]
  - Packaging design issue [None]
  - Product preparation error [None]
  - Product preparation issue [None]

NARRATIVE: CASE EVENT DATE: 20181103
